FAERS Safety Report 23323294 (Version 1)
Quarter: 2023Q4

REPORT INFORMATION
  Report Type: Spontaneous
  Country: US (occurrence: None)
  Receive Date: 20231220
  Receipt Date: 20231220
  Transmission Date: 20240109
  Serious: No
  Sender: FDA-Public Use
  Company Number: US-ROCHE-3339097

PATIENT
  Sex: Male
  Weight: 104.87 kg

DRUGS (13)
  1. RITUXAN [Suspect]
     Active Substance: RITUXIMAB
     Indication: Granulomatosis with polyangiitis
     Dosage: EVERY SIX MONTHS ;ONGOING: YES
     Route: 041
     Dates: start: 20191202
  2. HUMALOG [Concomitant]
     Active Substance: INSULIN LISPRO
     Dosage: 26-30 UNITS BEFORE MEALS
  3. LANTUS [Concomitant]
     Active Substance: INSULIN GLARGINE
     Dosage: 48 UNITS BEFORE BED
  4. MONOPRIL [Concomitant]
     Active Substance: FOSINOPRIL SODIUM
     Dosage: DAILY
  5. LOPRESSOR [Concomitant]
     Active Substance: METOPROLOL TARTRATE
     Dosage: DAILY
  6. NIFEDIPINE [Concomitant]
     Active Substance: NIFEDIPINE
     Dosage: DAILY
  7. SYNTHROID [Concomitant]
     Active Substance: LEVOTHYROXINE SODIUM
  8. ZOCOR [Concomitant]
     Active Substance: SIMVASTATIN
     Dosage: DAILY
  9. VITAMIN D NOS [Concomitant]
     Active Substance: VITAMIN D NOS
  10. SYMBICORT [Concomitant]
     Active Substance: BUDESONIDE\FORMOTEROL FUMARATE DIHYDRATE
  11. COSOPT [Concomitant]
     Active Substance: DORZOLAMIDE HYDROCHLORIDE\TIMOLOL MALEATE
  12. LATANOPROST [Concomitant]
     Active Substance: LATANOPROST
  13. DUPIXENT [Concomitant]
     Active Substance: DUPILUMAB

REACTIONS (2)
  - Rash [Unknown]
  - Pruritus [Unknown]

NARRATIVE: CASE EVENT DATE: 20210901
